FAERS Safety Report 7588176-9 (Version None)
Quarter: 2011Q3

REPORT INFORMATION
  Report Type: 
  Country: None (occurrence: None)
  Receive Date: 20110705
  Receipt Date: 20110620
  Transmission Date: 20111222
  Serious: Yes (Hospitalization, Other)
  Sender: FDA-Public Use
  Company Number: US-BAYER-201038505NA

PATIENT
  Age: 34 Year
  Sex: Female

DRUGS (7)
  1. NEXIUM [Concomitant]
  2. ATIVAN [Concomitant]
  3. YASMIN [Suspect]
     Indication: ACNE
     Route: 048
     Dates: start: 20050101
  4. WEIGHT LOSS PILLS [Concomitant]
  5. CLIDINIUM [Concomitant]
  6. LABETALOL HCL [Concomitant]
     Dosage: 100 MG, BID
  7. YASMIN [Suspect]
     Indication: PREMENSTRUAL SYNDROME

REACTIONS (8)
  - GALLBLADDER INJURY [None]
  - GASTROOESOPHAGEAL REFLUX DISEASE [None]
  - CHOLECYSTITIS CHRONIC [None]
  - DEPRESSION [None]
  - LIVER DISORDER [None]
  - HEPATIC STEATOSIS [None]
  - ANXIETY [None]
  - CHOLELITHIASIS [None]
